FAERS Safety Report 15280444 (Version 1)
Quarter: 2018Q3

REPORT INFORMATION
  Report Type: Spontaneous
  Country: IN (occurrence: IN)
  Receive Date: 20180815
  Receipt Date: 20180815
  Transmission Date: 20181010
  Serious: Yes (Death, Life-Threatening, Hospitalization, Other)
  Sender: FDA-Public Use
  Company Number: IN-ELI_LILLY_AND_COMPANY-IN201808006342

PATIENT
  Age: 21 Year
  Sex: Male

DRUGS (11)
  1. DNS [Concomitant]
     Indication: POISONING DELIBERATE
     Dosage: UNK, UNKNOWN, 2 PINTS OF IVF DNS
     Route: 042
  2. SODIUM VALPROATE [Concomitant]
     Active Substance: VALPROATE SODIUM
     Indication: SCHIZOPHRENIA
     Dosage: UNK, UNKNOWN, SINCE THE PAST 6 MONTHS
     Route: 065
  3. FLUOXETINE HYDROCHLORIDE. [Suspect]
     Active Substance: FLUOXETINE HYDROCHLORIDE
     Indication: SCHIZOPHRENIA
     Dosage: UNK, UNKNOWN, SINCE THE PAST 6 MONTHS
     Route: 065
  4. NORMAL SALINE [Concomitant]
     Active Substance: SODIUM CHLORIDE
     Indication: POISONING DELIBERATE
     Dosage: UNK, UNKNOWN, 1 PINT OF IVF NORMAL SALINE
     Route: 042
  5. VITAMIN K [Concomitant]
     Active Substance: PHYTONADIONE
     Indication: POISONING DELIBERATE
     Dosage: 20 MG, UNKNOWN
     Route: 030
  6. HALOPERIDOL. [Interacting]
     Active Substance: HALOPERIDOL
     Indication: SCHIZOPHRENIA
     Dosage: 2.5 MG, BID
     Route: 065
  7. RANITIDINE. [Concomitant]
     Active Substance: RANITIDINE
     Indication: POISONING DELIBERATE
     Dosage: 25 MG, BID
     Route: 042
  8. PHENERGAN [Concomitant]
     Active Substance: PROMETHAZINE HYDROCHLORIDE
     Indication: SCHIZOPHRENIA
     Dosage: 50 MG, BID
     Route: 030
  9. RINGERS LACTATE [Concomitant]
     Active Substance: CALCIUM CHLORIDE\POTASSIUM CHLORIDE\SODIUM LACTATE
     Indication: POISONING DELIBERATE
     Dosage: UNK UNK, UNKNOWN, 1 PINT OF IVF RINGER LACTATE
     Route: 042
  10. IMIPRAMINE [Interacting]
     Active Substance: IMIPRAMINE
     Indication: SCHIZOPHRENIA
     Dosage: UNK UNK, UNKNOWN, SINCE THE PAST 6 MONTHS
     Route: 065
  11. CEFOTAXIME [Concomitant]
     Active Substance: CEFOTAXIME SODIUM
     Indication: POISONING DELIBERATE
     Dosage: 1 G, BID
     Route: 065

REACTIONS (4)
  - Respiratory distress [Not Recovered/Not Resolved]
  - Cardio-respiratory arrest [Fatal]
  - Drug interaction [Not Recovered/Not Resolved]
  - Electrocardiogram QT prolonged [Not Recovered/Not Resolved]
